FAERS Safety Report 8896108 (Version 5)
Quarter: 2013Q3

REPORT INFORMATION
  Report Type: Spontaneous
  Country: US (occurrence: US)
  Receive Date: 20121108
  Receipt Date: 20130725
  Transmission Date: 20140515
  Serious: Yes (Hospitalization, Other)
  Sender: FDA-Public Use
  Company Number: US-009507513-1211USA000977

PATIENT
  Sex: Female

DRUGS (5)
  1. FOSAMAX [Suspect]
     Indication: OSTEOPOROSIS
     Dosage: 70 MG, UNK
     Route: 048
     Dates: end: 200903
  2. LIPITOR [Concomitant]
     Indication: BLOOD CHOLESTEROL INCREASED
     Dosage: UNK
     Dates: start: 2009
  3. CRESTOR [Concomitant]
     Indication: BLOOD CHOLESTEROL INCREASED
     Dosage: UNK
     Dates: end: 2009
  4. BENICAR [Concomitant]
     Indication: HYPERTENSION
     Dosage: UNK
  5. METFORMIN [Concomitant]
     Indication: DIABETES MELLITUS
     Dosage: UNK

REACTIONS (9)
  - Femur fracture [Unknown]
  - Fall [Unknown]
  - Open reduction of fracture [Unknown]
  - Pain in jaw [Unknown]
  - Pleuritic pain [Unknown]
  - Dental caries [Unknown]
  - Sinusitis [Unknown]
  - Rib fracture [Unknown]
  - Wrist fracture [Unknown]
